FAERS Safety Report 5647823-9 (Version None)
Quarter: 2008Q1

REPORT INFORMATION
  Report Type: 
  Country: None (occurrence: None)
  Receive Date: 20080228
  Receipt Date: 20080214
  Transmission Date: 20080703
  Serious: Yes (Hospitalization, Other)
  Sender: FDA-Public Use
  Company Number: 023567

PATIENT
  Age: 27 Year
  Sex: Male
  Weight: 54.4 kg

DRUGS (9)
  1. ADDERALL(DEXTROAMPHETAMUNE SACCHRATEM AMPHETAMINE ASPARTATE, DEXTREOAM [Suspect]
     Dosage: 80 MG/DAY, ORAL; 120 MG/DAY, ORAL
     Route: 048
     Dates: start: 20071201, end: 20080101
  2. ADDERALL(DEXTROAMPHETAMUNE SACCHRATEM AMPHETAMINE ASPARTATE, DEXTREOAM [Suspect]
     Dosage: 80 MG/DAY, ORAL; 120 MG/DAY, ORAL
     Route: 048
     Dates: start: 20071101
  3. ADDERALL XR 20 [Suspect]
     Indication: ATTENTION DEFICIT/HYPERACTIVITY DISORDER
     Dosage: 20 MG, QD, ORAL; 30 MG, QID, ORAL; 20 MG, QD, ORAL
     Route: 048
     Dates: start: 20071105, end: 20071101
  4. ADDERALL XR 20 [Suspect]
     Indication: ATTENTION DEFICIT/HYPERACTIVITY DISORDER
     Dosage: 20 MG, QD, ORAL; 30 MG, QID, ORAL; 20 MG, QD, ORAL
     Route: 048
     Dates: start: 20080102, end: 20080101
  5. ADDERALL XR 20 [Suspect]
     Indication: ATTENTION DEFICIT/HYPERACTIVITY DISORDER
     Dosage: 20 MG, QD, ORAL; 30 MG, QID, ORAL; 20 MG, QD, ORAL
     Route: 048
     Dates: start: 20080101, end: 20080211
  6. ESOMEPRAZOLE MAGNESIUM (ESOMEPRAZOLE MAGNESIUM) [Concomitant]
  7. CLONAZEPAM [Concomitant]
  8. LEVSIN (HYOSCYAMINE SULFATE) [Concomitant]
  9. SIMETHICONE (SIMETICONE) [Concomitant]

REACTIONS (13)
  - ABDOMINAL DISCOMFORT [None]
  - AGGRESSION [None]
  - AMNESIA [None]
  - ANGER [None]
  - ANXIETY [None]
  - DRY MOUTH [None]
  - DYSURIA [None]
  - EXOPHTHALMOS [None]
  - INTENTIONAL DRUG MISUSE [None]
  - MEMORY IMPAIRMENT [None]
  - OVERDOSE [None]
  - VASODILATATION [None]
  - WEIGHT DECREASED [None]
